FAERS Safety Report 7884281 (Version 7)
Quarter: 2014Q2

REPORT INFORMATION
  Report Type: Spontaneous
  Country: US (occurrence: US)
  Receive Date: 20110404
  Receipt Date: 20140613
  Transmission Date: 20141212
  Serious: Yes (Hospitalization, Other)
  Sender: FDA-Public Use
  Company Number: US-ASTRAZENECA-2011SE17564

PATIENT
  Age: 70 Year
  Sex: Female
  Weight: 74.8 kg

DRUGS (22)
  1. NEXIUM [Suspect]
     Indication: GASTROINTESTINAL DISORDER
     Route: 048
  2. NEXIUM [Suspect]
     Indication: THYROID DISORDER
     Route: 048
  3. NEXIUM [Suspect]
     Indication: GASTROOESOPHAGEAL REFLUX DISEASE
     Route: 048
  4. NEXIUM [Suspect]
     Indication: NAUSEA
     Route: 048
  5. NEXIUM [Suspect]
     Indication: GASTROINTESTINAL DISORDER
     Route: 048
     Dates: start: 2002
  6. NEXIUM [Suspect]
     Indication: THYROID DISORDER
     Route: 048
     Dates: start: 2002
  7. NEXIUM [Suspect]
     Indication: GASTROOESOPHAGEAL REFLUX DISEASE
     Route: 048
     Dates: start: 2002
  8. NEXIUM [Suspect]
     Indication: NAUSEA
     Route: 048
     Dates: start: 2002
  9. PRILOSEC [Suspect]
     Route: 048
  10. PRILOSEC OTC [Suspect]
     Indication: GASTROOESOPHAGEAL REFLUX DISEASE
     Route: 048
  11. TAMOXIFEN [Suspect]
     Indication: BREAST CANCER
     Route: 048
     Dates: start: 2009
  12. GENERIC MEDICATION [Suspect]
     Route: 065
  13. LAVOXAL [Suspect]
     Indication: ILL-DEFINED DISORDER
     Route: 065
  14. LAVOXAL [Suspect]
     Indication: THYROID DISORDER
     Route: 065
  15. RANITIDINE [Concomitant]
  16. ELMIRON [Concomitant]
  17. TYLENOL [Concomitant]
  18. TRAMADOL [Concomitant]
     Indication: BACK PAIN
  19. SYNTHETIC THYROID [Concomitant]
     Indication: BASEDOW^S DISEASE
     Dosage: 112 MCG DAILY
  20. TINOSANT [Concomitant]
     Indication: ILL-DEFINED DISORDER
  21. LOSARTAN [Concomitant]
  22. ALLERGY TABLETS [Concomitant]
     Indication: MULTIPLE ALLERGIES
     Dosage: AS REQUIRED

REACTIONS (16)
  - Breast cancer [Unknown]
  - Cystitis interstitial [Unknown]
  - Intervertebral disc degeneration [Unknown]
  - Thyroid disorder [Unknown]
  - Gastrooesophageal reflux disease [Unknown]
  - Blood thyroid stimulating hormone [Unknown]
  - Hot flush [Unknown]
  - Nausea [Unknown]
  - Abdominal discomfort [Unknown]
  - Malaise [Unknown]
  - Diarrhoea [Unknown]
  - Abdominal pain upper [Unknown]
  - Gastrointestinal pain [Unknown]
  - Drug ineffective [Unknown]
  - Intentional product misuse [Unknown]
  - Drug dose omission [Unknown]
